FAERS Safety Report 24117218 (Version 2)
Quarter: 2024Q3

REPORT INFORMATION
  Report Type: Spontaneous
  Country: BE (occurrence: BE)
  Receive Date: 20240722
  Receipt Date: 20240731
  Transmission Date: 20241016
  Serious: Yes (Hospitalization, Other)
  Sender: AUROBINDO
  Company Number: BE-MLMSERVICE-20240704-PI123198-00029-1

PATIENT
  Age: 15 Year
  Sex: Female
  Weight: 57 kg

DRUGS (1)
  1. ACETAMINOPHEN [Suspect]
     Active Substance: ACETAMINOPHEN
     Indication: Product used for unknown indication
     Dosage: 10 DOSAGE FORM, SINGLE INGESTION OF 10 TABLETS OF PARACETAMOL 1 G 2 DAYS BEFORE  (10G OR 175 MG/KG)
     Route: 048

REACTIONS (8)
  - Acute kidney injury [Recovered/Resolved]
  - Renal tubular necrosis [Recovered/Resolved]
  - Suicide attempt [Recovered/Resolved]
  - Vomiting [Recovered/Resolved]
  - Overdose [Unknown]
  - Intentional overdose [Recovered/Resolved]
  - Nephropathy toxic [Recovered/Resolved]
  - Abdominal pain [Recovered/Resolved]
